FAERS Safety Report 5131797-3 (Version None)
Quarter: 2006Q4

REPORT INFORMATION
  Report Type: 
  Country: None (occurrence: None)
  Receive Date: 20061016
  Receipt Date: 20061003
  Transmission Date: 20070319
  Serious: Yes (Death, Hospitalization)
  Sender: FDA-Public Use
  Company Number: 2006120010

PATIENT
  Age: 77 Year
  Sex: Female
  Weight: 68 kg

DRUGS (5)
  1. SUTENT [Suspect]
     Indication: METASTATIC RENAL CELL CARCINOMA
     Dosage: 50 MG (50 MG, DAILY EVERY DAY), ORAL
     Route: 048
     Dates: start: 20060227, end: 20060614
  2. FELODAY (FELODIPINE) [Concomitant]
  3. LANITOP (METILDIGOXIN) [Concomitant]
  4. OMEPRAZOLE [Concomitant]
  5. LASIX [Concomitant]

REACTIONS (3)
  - EPISTAXIS [None]
  - GASTROINTESTINAL HAEMORRHAGE [None]
  - RECTAL HAEMORRHAGE [None]
